FAERS Safety Report 5256582-3 (Version None)
Quarter: 2007Q1

REPORT INFORMATION
  Report Type: 
  Country: None (occurrence: None)
  Receive Date: 20070306
  Receipt Date: 20070226
  Transmission Date: 20070707
  Serious: Yes (Other)
  Sender: FDA-Public Use
  Company Number: 2007PK00047

PATIENT
  Sex: Female
  Weight: 60 kg

DRUGS (1)
  1. ARIMIDEX [Suspect]
     Indication: BREAST CANCER FEMALE
     Route: 048
     Dates: start: 20031201, end: 20070126

REACTIONS (13)
  - ABDOMINAL PAIN UPPER [None]
  - ANORECTAL DISORDER [None]
  - BLOOD ALKALINE PHOSPHATASE INCREASED [None]
  - DIARRHOEA [None]
  - DRY EYE [None]
  - DRY MOUTH [None]
  - FATIGUE [None]
  - GENITAL DISORDER FEMALE [None]
  - NASAL DRYNESS [None]
  - NASOPHARYNGEAL DISORDER [None]
  - URINARY TRACT INFECTION [None]
  - VERTIGO [None]
  - VULVOVAGINAL DRYNESS [None]
